FAERS Safety Report 11881377 (Version 1)
Quarter: 2015Q4

REPORT INFORMATION
  Report Type: Spontaneous
  Country: SE (occurrence: SE)
  Receive Date: 20151231
  Receipt Date: 20151231
  Transmission Date: 20160305
  Serious: Yes (Other)
  Sender: FDA-Public Use
  Company Number: PHHY2015SE169733

PATIENT
  Age: 27 Year
  Sex: Female

DRUGS (3)
  1. 5-FLUOROURACIL [Suspect]
     Active Substance: FLUOROURACIL
     Indication: ADENOCARCINOMA OF COLON
     Dosage: 3 CYCLES
     Route: 065
  2. OXALIPLATIN. [Suspect]
     Active Substance: OXALIPLATIN
     Indication: ADENOCARCINOMA OF COLON
     Dosage: 3 CYCLES
     Route: 065
  3. OXALIPLATIN. [Suspect]
     Active Substance: OXALIPLATIN
     Indication: METASTASES TO LIVER

REACTIONS (8)
  - General physical health deterioration [Recovered/Resolved]
  - Hypoalbuminaemia [Recovered/Resolved]
  - Somnolence [Recovered/Resolved]
  - Thrombocytosis [Recovered/Resolved]
  - Pulmonary embolism [Unknown]
  - Weight decreased [Unknown]
  - Anaemia [Recovered/Resolved]
  - Infection [Unknown]
